FAERS Safety Report 6531069-6 (Version None)
Quarter: 2010Q1

REPORT INFORMATION
  Report Type: 
  Country: None (occurrence: None)
  Receive Date: 20100108
  Receipt Date: 20091109
  Transmission Date: 20100710
  Serious: No
  Sender: FDA-Public Use
  Company Number: A0816059A

PATIENT
  Age: 75 Year
  Sex: Female

DRUGS (9)
  1. LOVAZA [Suspect]
     Dosage: 6G PER DAY
     Route: 048
     Dates: start: 20090101
  2. SYNTHROID [Concomitant]
  3. DYAZIDE [Concomitant]
  4. VESICARE [Concomitant]
  5. ARTHROTEC [Concomitant]
  6. ACTONEL [Concomitant]
  7. WELCHOL [Concomitant]
  8. PROCARDIA XL [Concomitant]
  9. HORSE-CHESTNUT [Concomitant]

REACTIONS (3)
  - ALOPECIA [None]
  - DRUG ADMINISTRATION ERROR [None]
  - DRUG INEFFECTIVE [None]
